FAERS Safety Report 21541652 (Version 4)
Quarter: 2022Q4

REPORT INFORMATION
  Report Type: Spontaneous
  Country: US (occurrence: US)
  Receive Date: 20221102
  Receipt Date: 20221123
  Transmission Date: 20230113
  Serious: Yes (Other)
  Sender: FDA-Public Use
  Company Number: US-SA-SAC20221102000561

PATIENT
  Age: 78 Year
  Sex: Male
  Weight: 82.5 kg

DRUGS (3)
  1. DUPIXENT [Suspect]
     Active Substance: DUPILUMAB
     Indication: Dermatitis atopic
     Dosage: 300 MG, QOW
     Route: 058
     Dates: start: 20191001
  2. DUPIXENT [Suspect]
     Active Substance: DUPILUMAB
     Indication: Dermatitis atopic
     Dosage: UNK
  3. RINVOQ [Suspect]
     Active Substance: UPADACITINIB
     Dosage: UNK

REACTIONS (8)
  - Thrombosis [Not Recovered/Not Resolved]
  - Neoplasm malignant [Unknown]
  - Restless legs syndrome [Unknown]
  - Sleep disorder [Unknown]
  - Extrasystoles [Unknown]
  - Abnormal dreams [Recovering/Resolving]
  - Drug interaction [Recovering/Resolving]
  - Peripheral swelling [Not Recovered/Not Resolved]

NARRATIVE: CASE EVENT DATE: 20220101
